FAERS Safety Report 14478688 (Version 1)
Quarter: 2018Q1

REPORT INFORMATION
  Report Type: Spontaneous
  Country: DE (occurrence: DE)
  Receive Date: 20180202
  Receipt Date: 20180202
  Transmission Date: 20180509
  Serious: Yes (Other)
  Sender: FDA-Public Use
  Company Number: DE-SUN PHARMACEUTICAL INDUSTRIES LTD-2018R1-161805

PATIENT
  Age: 84 Year
  Sex: Male
  Weight: 86 kg

DRUGS (6)
  1. EUTHYROX 75 [Concomitant]
     Indication: PRODUCT USED FOR UNKNOWN INDICATION
     Dosage: 75 ?G, DAILY
     Route: 065
  2. VALSARTAN. [Concomitant]
     Active Substance: VALSARTAN
     Indication: PRODUCT USED FOR UNKNOWN INDICATION
     Dosage: 80 MG, DAILY
     Route: 065
  3. VALSARTAN. [Suspect]
     Active Substance: VALSARTAN
     Indication: PRODUCT USED FOR UNKNOWN INDICATION
     Dosage: 80 MG, DAILY
     Route: 065
  4. TORASEMID AL [Concomitant]
     Active Substance: TORSEMIDE
     Indication: PRODUCT USED FOR UNKNOWN INDICATION
     Dosage: 10 MG, DAILY
     Route: 065
  5. BISOPROLOL [Concomitant]
     Active Substance: BISOPROLOL
     Indication: PRODUCT USED FOR UNKNOWN INDICATION
     Dosage: 5 MG, (1-0-1/2)
     Route: 065
  6. PHENPROGAMMA 3 [Concomitant]
     Indication: PRODUCT USED FOR UNKNOWN INDICATION
     Dosage: 3 MG, DAILY (NACH QUICK-WERT)
     Route: 065
     Dates: start: 20101119

REACTIONS (7)
  - Neck pain [Unknown]
  - Fatigue [Unknown]
  - Intervertebral disc disorder [Unknown]
  - Arrhythmia [Unknown]
  - Headache [Unknown]
  - Dizziness [Unknown]
  - Fall [Unknown]
